FAERS Safety Report 9152861 (Version 1)
Quarter: 2013Q1

REPORT INFORMATION
  Report Type: Report from Study
  Country: BR (occurrence: BR)
  Receive Date: 20130309
  Receipt Date: 20130309
  Transmission Date: 20140127
  Serious: Yes (Hospitalization)
  Sender: FDA-Public Use
  Company Number: BR-US-EMD SERONO, INC.-7197674

PATIENT
  Age: 54 Year
  Sex: Female

DRUGS (3)
  1. REBIF [Suspect]
     Indication: MULTIPLE SCLEROSIS
     Dates: start: 20111227
  2. LACTULONA [Concomitant]
     Indication: PRODUCT USED FOR UNKNOWN INDICATION
  3. ZELACTIM [Concomitant]
     Indication: DEPRESSION

REACTIONS (1)
  - Hysterectomy [Recovering/Resolving]
